FAERS Safety Report 8390319-4 (Version None)
Quarter: 2012Q2

REPORT INFORMATION
  Report Type: 
  Country: None (occurrence: None)
  Receive Date: 20120529
  Receipt Date: 20120523
  Transmission Date: 20120825
  Serious: Yes (Life-Threatening, Hospitalization)
  Sender: FDA-Public Use
  Company Number: GB-PFIZER INC-2012124284

PATIENT
  Age: 77 Year
  Sex: Female

DRUGS (12)
  1. DIGOXIN [Concomitant]
  2. FUROSEMIDE [Concomitant]
  3. LANSOPRAZOLE [Concomitant]
  4. SIMVASTATIN [Concomitant]
  5. KENALOG [Concomitant]
  6. BISOPROLOL [Concomitant]
  7. ALENDRONATE SODIUM [Concomitant]
  8. SULFASALAZINE [Suspect]
     Indication: RHEUMATOID ARTHRITIS
     Dosage: GRADUALLY INCREASING DOSE TO 1G TWICE A DAY
     Route: 048
     Dates: start: 20120316, end: 20120428
  9. WARFARIN [Concomitant]
  10. PREDNISOLONE [Concomitant]
  11. RAMIPRIL [Concomitant]
  12. ADCAL-D3 [Concomitant]

REACTIONS (6)
  - CELLULITIS [None]
  - NEUTROPENIC SEPSIS [None]
  - PAIN IN EXTREMITY [None]
  - STAPHYLOCOCCAL BACTERAEMIA [None]
  - MALAISE [None]
  - RENAL FAILURE ACUTE [None]
